FAERS Safety Report 7973076-2 (Version None)
Quarter: 2011Q4

REPORT INFORMATION
  Report Type: 
  Country: None (occurrence: None)
  Receive Date: 20111209
  Receipt Date: 20111129
  Transmission Date: 20120403
  Serious: Yes (Other)
  Sender: FDA-Public Use
  Company Number: PNIS20110021

PATIENT
  Age: 58 Year
  Sex: Female

DRUGS (5)
  1. PREDNISOLONE [Suspect]
     Indication: IMMUNOSUPPRESSION
     Dosage: 5 MG/DAY, ORAL
     Route: 048
  2. CYCLOSPORINE [Concomitant]
  3. ATENOLOL [Concomitant]
  4. FELODIPINE (FELODIPINE) (FELODIPINE) [Concomitant]
  5. ERPROSARTAN (APROSARTAN) (EPROSARTAN) [Concomitant]

REACTIONS (1)
  - CHORIORETINOPATHY [None]
